FAERS Safety Report 21673095 (Version 1)
Quarter: 2022Q4

REPORT INFORMATION
  Report Type: Spontaneous
  Country: US (occurrence: None)
  Receive Date: 20221202
  Receipt Date: 20221202
  Transmission Date: 20230112
  Serious: Yes (Hospitalization)
  Sender: FDA-Public Use
  Company Number: US-ROCHE-3227078

PATIENT
  Age: 46 Year
  Sex: Male
  Weight: 73.5 kg

DRUGS (1)
  1. OCREVUS [Suspect]
     Active Substance: OCRELIZUMAB
     Indication: Multiple sclerosis
     Dosage: RECEIVED 2 DOSES OF 300MG IN 2018 AND RECEIVED 600MG EVERY 6 MONTHS FROM 2019 TO 2021
     Route: 042
     Dates: start: 2018, end: 2021

REACTIONS (2)
  - Sepsis [Unknown]
  - Immunoglobulins decreased [Unknown]

NARRATIVE: CASE EVENT DATE: 20210101
